FAERS Safety Report 7549185-9 (Version None)
Quarter: 2011Q2

REPORT INFORMATION
  Report Type: 
  Country: None (occurrence: None)
  Receive Date: 20110615
  Receipt Date: 20110607
  Transmission Date: 20111010
  Serious: Yes (Other)
  Sender: FDA-Public Use
  Company Number: PHEH2009US04496

PATIENT
  Sex: Female

DRUGS (17)
  1. ZOMETA [Suspect]
     Indication: OSTEOPOROSIS
  2. LEXAPRO [Concomitant]
     Dosage: 10
  3. DULCOLAX [Concomitant]
  4. KEFLEX [Concomitant]
  5. ZOMETA [Suspect]
     Indication: BONE LOSS
     Dosage: UNK
     Dates: start: 20040601
  6. COZAAR [Concomitant]
  7. FEMARA [Concomitant]
  8. EXEMESTANE [Concomitant]
  9. LETROZOLE [Concomitant]
  10. FULVESTRANT [Concomitant]
  11. HYZAAR [Concomitant]
     Dosage: 100/25
  12. METFORMIN HCL [Concomitant]
     Dosage: 500 XR
  13. TAMOXIFEN CITRATE [Concomitant]
  14. CIPROFLOXACIN [Concomitant]
     Dosage: 250
  15. CITALOPRAM [Concomitant]
     Dosage: 40
  16. CYMBALTA [Concomitant]
     Dosage: 60
  17. AROMASIN [Concomitant]
     Dosage: 25

REACTIONS (30)
  - OSTEONECROSIS OF JAW [None]
  - INJURY [None]
  - METASTASES TO LIVER [None]
  - FOOT FRACTURE [None]
  - HYPERTENSION [None]
  - HYPOAESTHESIA [None]
  - SLEEP APNOEA SYNDROME [None]
  - OBESITY [None]
  - NEOPLASM MALIGNANT [None]
  - PAIN [None]
  - SPINAL OSTEOARTHRITIS [None]
  - DEPRESSION [None]
  - BASAL CELL CARCINOMA [None]
  - DIABETES MELLITUS [None]
  - RENAL CYST [None]
  - BACK PAIN [None]
  - BONE PAIN [None]
  - METASTASES TO BONE [None]
  - THORACIC VERTEBRAL FRACTURE [None]
  - URINARY TRACT INFECTION [None]
  - PAIN IN EXTREMITY [None]
  - GRANULOMA [None]
  - CHEST PAIN [None]
  - OSTEOLYSIS [None]
  - BREAST CANCER [None]
  - FEMUR FRACTURE [None]
  - PATHOLOGICAL FRACTURE [None]
  - PARAESTHESIA [None]
  - OSTEOARTHRITIS [None]
  - FATIGUE [None]
